FAERS Safety Report 17855456 (Version 2)
Quarter: 2020Q2

REPORT INFORMATION
  Report Type: Spontaneous
  Country: US (occurrence: US)
  Receive Date: 20200603
  Receipt Date: 20200625
  Transmission Date: 20200714
  Serious: Yes (Hospitalization, Other)
  Sender: FDA-Public Use
  Company Number: US-SA-2020SA136341

PATIENT

DRUGS (26)
  1. DEXAMETHASONE SALT NOT SPECIFIED [Suspect]
     Active Substance: DEXAMETHASONE
     Indication: HIGH-GRADE B-CELL LYMPHOMA
  2. GEMCITABINE. [Concomitant]
     Active Substance: GEMCITABINE
     Indication: B-CELL LYMPHOMA RECURRENT
  3. METHOTREXATE. [Concomitant]
     Active Substance: METHOTREXATE
     Indication: B-CELL LYMPHOMA RECURRENT
  4. METHOTREXATE. [Concomitant]
     Active Substance: METHOTREXATE
     Indication: HIGH-GRADE B-CELL LYMPHOMA
  5. RITUXIMAB. [Concomitant]
     Active Substance: RITUXIMAB
     Indication: DOUBLE HIT LYMPHOMA
  6. DEXAMETHASONE SALT NOT SPECIFIED [Suspect]
     Active Substance: DEXAMETHASONE
     Indication: DOUBLE HIT LYMPHOMA
     Dosage: PULSE HIGH-DOSE DEXAMETHASONE
  7. DEXAMETHASONE SALT NOT SPECIFIED [Suspect]
     Active Substance: DEXAMETHASONE
     Indication: BALANCE DISORDER
  8. OXALIPLATIN. [Suspect]
     Active Substance: OXALIPLATIN
     Indication: B-CELL LYMPHOMA RECURRENT
  9. THIOTEPA. [Concomitant]
     Active Substance: THIOTEPA
     Indication: B-CELL LYMPHOMA RECURRENT
  10. OXALIPLATIN. [Suspect]
     Active Substance: OXALIPLATIN
     Indication: DOUBLE HIT LYMPHOMA
  11. GEMCITABINE. [Concomitant]
     Active Substance: GEMCITABINE
     Indication: DOUBLE HIT LYMPHOMA
  12. CYCLOPHOSPHAMIDE;FLUDARABINE [Concomitant]
     Active Substance: CYCLOPHOSPHAMIDE\FLUDARABINE
     Indication: LYMPHOCYTE COUNT DECREASED
  13. DEXAMETHASONE SALT NOT SPECIFIED [Suspect]
     Active Substance: DEXAMETHASONE
     Indication: B-CELL LYMPHOMA RECURRENT
  14. GEMCITABINE. [Concomitant]
     Active Substance: GEMCITABINE
     Indication: HIGH-GRADE B-CELL LYMPHOMA
  15. THIOTEPA. [Concomitant]
     Active Substance: THIOTEPA
     Indication: HIGH-GRADE B-CELL LYMPHOMA
  16. CYTARABINE. [Concomitant]
     Active Substance: CYTARABINE
     Indication: B-CELL LYMPHOMA RECURRENT
  17. THIOTEPA. [Concomitant]
     Active Substance: THIOTEPA
     Indication: DOUBLE HIT LYMPHOMA
  18. RITUXIMAB. [Concomitant]
     Active Substance: RITUXIMAB
     Indication: B-CELL LYMPHOMA RECURRENT
  19. OXALIPLATIN. [Suspect]
     Active Substance: OXALIPLATIN
     Indication: HIGH-GRADE B-CELL LYMPHOMA
  20. DEXAMETHASONE SALT NOT SPECIFIED [Suspect]
     Active Substance: DEXAMETHASONE
     Indication: URINARY INCONTINENCE
  21. CYTARABINE. [Concomitant]
     Active Substance: CYTARABINE
     Indication: DOUBLE HIT LYMPHOMA
  22. RITUXIMAB. [Concomitant]
     Active Substance: RITUXIMAB
     Indication: HIGH-GRADE B-CELL LYMPHOMA
  23. DEXAMETHASONE SALT NOT SPECIFIED [Suspect]
     Active Substance: DEXAMETHASONE
     Indication: HEMIPARESIS
  24. DEXAMETHASONE SALT NOT SPECIFIED [Suspect]
     Active Substance: DEXAMETHASONE
     Indication: VISION BLURRED
  25. METHOTREXATE. [Concomitant]
     Active Substance: METHOTREXATE
     Indication: DOUBLE HIT LYMPHOMA
  26. CYTARABINE. [Concomitant]
     Active Substance: CYTARABINE
     Indication: HIGH-GRADE B-CELL LYMPHOMA

REACTIONS (2)
  - Off label use [Unknown]
  - Cataract [Unknown]
